FAERS Safety Report 4426681-4 (Version None)
Quarter: 2004Q3

REPORT INFORMATION
  Report Type: 
  Country: None (occurrence: None)
  Receive Date: 20040816
  Receipt Date: 20040420
  Transmission Date: 20050211
  Serious: Yes (Hospitalization)
  Sender: FDA-Public Use
  Company Number: US-MERCK-0404USA01938

PATIENT
  Age: 55 Year
  Sex: Male
  Weight: 77 kg

DRUGS (5)
  1. ALLOPURINOL [Suspect]
     Indication: GOUT
     Route: 048
     Dates: start: 19910101, end: 20040302
  2. ASPIRIN [Concomitant]
     Route: 065
     Dates: start: 19760101
  3. NEURONTIN [Concomitant]
     Route: 065
     Dates: start: 20031101
  4. VIOXX [Suspect]
     Indication: ARTHRITIS
     Route: 048
     Dates: start: 20010101, end: 20040308
  5. VITAMINS (UNSPECIFIED) [Concomitant]
     Route: 065

REACTIONS (5)
  - ALANINE AMINOTRANSFERASE INCREASED [None]
  - ASPARTATE AMINOTRANSFERASE INCREASED [None]
  - BLOOD ALKALINE PHOSPHATASE INCREASED [None]
  - BLOOD BILIRUBIN INCREASED [None]
  - PLEURISY [None]
